FAERS Safety Report 8340391-2 (Version None)
Quarter: 2012Q2

REPORT INFORMATION
  Report Type: 
  Country: None (occurrence: None)
  Receive Date: 20120507
  Receipt Date: 20120503
  Transmission Date: 20120825
  Serious: Yes (Life-Threatening, Disabling, Other)
  Sender: FDA-Public Use
  Company Number: ES-ASTRAZENECA-2012SE28600

PATIENT
  Age: 35 Year
  Sex: Female

DRUGS (1)
  1. BUPIVACAINE HCL [Suspect]
     Indication: SPINAL ANAESTHESIA
     Route: 037

REACTIONS (3)
  - SUBARACHNOID HAEMORRHAGE [None]
  - SPINAL HAEMANGIOMA [None]
  - PARAPLEGIA [None]
